FAERS Safety Report 23911315 (Version 1)
Quarter: 2024Q2

REPORT INFORMATION
  Report Type: Spontaneous
  Country: CO (occurrence: CO)
  Receive Date: 20240528
  Receipt Date: 20240528
  Transmission Date: 20240716
  Serious: Yes (Other)
  Sender: FDA-Public Use
  Company Number: CO-JNJFOC-20240559842

PATIENT
  Sex: Female
  Weight: 28 kg

DRUGS (1)
  1. TOPIRAMATE [Suspect]
     Active Substance: TOPIRAMATE
     Indication: Migraine
     Route: 048

REACTIONS (2)
  - Spinal muscular atrophy [Unknown]
  - Malnutrition [Unknown]
